FAERS Safety Report 6896891-5 (Version None)
Quarter: 2010Q3

REPORT INFORMATION
  Report Type: 
  Country: None (occurrence: None)
  Receive Date: 20100802
  Receipt Date: 20070223
  Transmission Date: 20110219
  Serious: No
  Sender: FDA-Public Use
  Company Number: US-PFIZER INC-2007017414

PATIENT
  Sex: Female

DRUGS (3)
  1. LYRICA [Suspect]
     Route: 048
     Dates: start: 20060801
  2. ELAVIL [Suspect]
     Indication: SLEEP DISORDER
  3. AMBIEN [Suspect]
     Indication: SLEEP DISORDER
     Dates: start: 20060201

REACTIONS (1)
  - DRUG SCREEN FALSE POSITIVE [None]
